FAERS Safety Report 6199682-6 (Version None)
Quarter: 2009Q2

REPORT INFORMATION
  Report Type: 
  Country: None (occurrence: None)
  Receive Date: 20090522
  Receipt Date: 20090518
  Transmission Date: 20091009
  Serious: No
  Sender: FDA-Public Use
  Company Number: US-B.I. PHARMACEUTICALS,INC./RIDGEFIELD-2009-BP-06156BP

PATIENT
  Sex: Male

DRUGS (3)
  1. COMBIVENT [Suspect]
     Indication: ASTHMA
     Route: 055
  2. RAPAFLO [Suspect]
     Indication: PROSTATIC DISORDER
     Dosage: 8MG
     Route: 048
     Dates: start: 20090505
  3. IPRATROPIUM BROMIDE AND ALBUTEROL SULFATE [Suspect]
     Indication: ASTHMA
     Route: 055

REACTIONS (2)
  - ASTHENIA [None]
  - FLUSHING [None]
